FAERS Safety Report 5570191-8 (Version None)
Quarter: 2007Q4

REPORT INFORMATION
  Report Type: 
  Country: None (occurrence: None)
  Receive Date: 20071220
  Receipt Date: 20071210
  Transmission Date: 20080405
  Serious: Yes (Hospitalization)
  Sender: FDA-Public Use
  Company Number: FR-PFIZER INC-2007104306

PATIENT
  Sex: Female

DRUGS (5)
  1. LYRICA [Suspect]
     Indication: NEUROPATHY
     Route: 048
     Dates: start: 20070906, end: 20070910
  2. NEXEN [Suspect]
     Indication: NEUROPATHY
     Route: 048
     Dates: start: 20070906, end: 20070910
  3. LYSANXIA [Concomitant]
     Route: 048
  4. EFFEXOR [Concomitant]
     Route: 048
  5. MEPRONIZINE [Concomitant]
     Route: 048

REACTIONS (5)
  - EYE IRRITATION [None]
  - MOUTH ULCERATION [None]
  - MUCOSAL ULCERATION [None]
  - ORAL PAIN [None]
  - RASH ERYTHEMATOUS [None]
